APPROVED DRUG PRODUCT: MINOXIDIL (FOR MEN)
Active Ingredient: MINOXIDIL
Strength: 2%
Dosage Form/Route: SOLUTION;TOPICAL
Application: A074731 | Product #001
Applicant: HIKMA PHARMACEUTICALS USA INC
Approved: Dec 24, 1996 | RLD: No | RS: No | Type: DISCN